FAERS Safety Report 16046400 (Version 1)
Quarter: 2019Q1

REPORT INFORMATION
  Report Type: Report from Study
  Country: US (occurrence: US)
  Receive Date: 20190307
  Receipt Date: 20190307
  Transmission Date: 20190418
  Serious: Yes (Hospitalization, Other)
  Sender: FDA-Public Use
  Company Number: PHHO2017US004031

PATIENT
  Age: 11 Year
  Sex: Male
  Weight: 58.3 kg

DRUGS (2)
  1. METHOTREXATE SODIUM. [Suspect]
     Active Substance: METHOTREXATE SODIUM
     Indication: PRODUCT USED FOR UNKNOWN INDICATION
     Dosage: 15 MG, QD
     Route: 042
     Dates: start: 20170110
  2. NO TREATMENT RECEIVED [Suspect]
     Active Substance: UNSPECIFIED INGREDIENT
     Indication: ACUTE LYMPHOCYTIC LEUKAEMIA
     Dosage: NO TREATMENT
     Route: 065

REACTIONS (6)
  - Scrotal pain [Recovered/Resolved]
  - Scrotal pain [Recovered/Resolved]
  - Pyrexia [Recovered/Resolved]
  - Bacteraemia [Recovered/Resolved]
  - Pyrexia [Recovered/Resolved]
  - Cellulitis of male external genital organ [Recovered/Resolved]

NARRATIVE: CASE EVENT DATE: 20170217
